FAERS Safety Report 21127332 (Version 2)
Quarter: 2022Q3

REPORT INFORMATION
  Report Type: Spontaneous
  Country: US (occurrence: US)
  Receive Date: 20220725
  Receipt Date: 20220920
  Transmission Date: 20221026
  Serious: No
  Sender: FDA-Public Use
  Company Number: US-PFIZER INC-PV202200027973

PATIENT
  Age: 53 Year
  Sex: Female

DRUGS (3)
  1. IBRANCE [Suspect]
     Active Substance: PALBOCICLIB
     Indication: Breast cancer female
     Dosage: 125 MG, CYCLIC (ONCE DAILY FOR 21 DAYS THEN 7 DAYS OFF, EVERY 28 DAY CYCLE)
     Route: 048
     Dates: start: 20220127
  2. SHINGRIX [Concomitant]
     Active Substance: RECOMBINANT VARICELLA ZOSTER VIRUS (VZV) GLYCOPROTEIN E
     Dosage: UNK
  3. ZOLEDRONIC [Concomitant]
     Active Substance: ZOLEDRONIC ACID
     Dosage: UNK (5/100 ML)

REACTIONS (2)
  - Insomnia [Not Recovered/Not Resolved]
  - Neutrophil count decreased [Unknown]

NARRATIVE: CASE EVENT DATE: 20220101
